FAERS Safety Report 5041369-7 (Version None)
Quarter: 2006Q2

REPORT INFORMATION
  Report Type: 
  Country: None (occurrence: None)
  Receive Date: 20060622
  Receipt Date: 20060612
  Transmission Date: 20061013
  Serious: Yes (Other)
  Sender: FDA-Public Use
  Company Number: 2006074984

PATIENT
  Age: 52 Year
  Sex: Female
  Weight: 81.6475 kg

DRUGS (9)
  1. CELEBREX [Suspect]
     Indication: ARTHRITIS
     Dosage: 400 MG (200 MG, 2 IN 1 D)
     Dates: start: 20000101
  2. CELEBREX [Suspect]
     Indication: NEUROPATHY
     Dosage: 400 MG (200 MG, 2 IN 1 D)
     Dates: start: 20000101
  3. BEXTRA [Concomitant]
  4. VIOXX [Concomitant]
  5. ULTRAM [Concomitant]
  6. PERCOCET [Concomitant]
  7. MORPHINE [Concomitant]
  8. ASPIRIN [Concomitant]
  9. DEMEROL [Concomitant]

REACTIONS (6)
  - CARDIAC FLUTTER [None]
  - CARDIOMEGALY [None]
  - CEREBROVASCULAR ACCIDENT [None]
  - CHEST PAIN [None]
  - HEART RATE IRREGULAR [None]
  - MYOCARDIAL INFARCTION [None]
